FAERS Safety Report 22645932 (Version 1)
Quarter: 2023Q2

REPORT INFORMATION
  Report Type: Spontaneous
  Country: FR (occurrence: FR)
  Receive Date: 20230627
  Receipt Date: 20230627
  Transmission Date: 20230721
  Serious: Yes (Other)
  Sender: FDA-Public Use
  Company Number: None

PATIENT
  Age: 66 Year
  Sex: Female
  Weight: 64 kg

DRUGS (3)
  1. PACLITAXEL [Suspect]
     Active Substance: PACLITAXEL
     Indication: Gastric cancer stage 0
     Dosage: 132 MG/DAY?1 FP
     Route: 042
     Dates: start: 20230516, end: 20230516
  2. METHYLPREDNISOLONE [Suspect]
     Active Substance: METHYLPREDNISOLONE
     Indication: Premedication
     Dosage: 40 MG?1FP
     Route: 042
     Dates: start: 20230516, end: 20230516
  3. FAMOTIDINE [Suspect]
     Active Substance: FAMOTIDINE
     Indication: Premedication
     Dosage: 20 MG?1FP
     Route: 042
     Dates: start: 20230516, end: 20230516

REACTIONS (1)
  - Symmetrical drug-related intertriginous and flexural exanthema [Not Recovered/Not Resolved]

NARRATIVE: CASE EVENT DATE: 20230517
